FAERS Safety Report 25987224 (Version 1)
Quarter: 2025Q4

REPORT INFORMATION
  Report Type: Spontaneous
  Country: GB (occurrence: GB)
  Receive Date: 20251103
  Receipt Date: 20251103
  Transmission Date: 20260118
  Serious: Yes (Life-Threatening, Other)
  Sender: ALKEM
  Company Number: None

PATIENT
  Age: 63 Year
  Sex: Female
  Weight: 98 kg

DRUGS (5)
  1. IBUPROFEN [Suspect]
     Active Substance: IBUPROFEN
     Indication: Ill-defined disorder
     Dosage: UNK (CAPSULES)
     Route: 065
     Dates: start: 20250527, end: 20250626
  2. Cetraben [Concomitant]
     Indication: Product used for unknown indication
     Dosage: UNK
     Route: 065
  3. Flaminal Hydro [Concomitant]
     Indication: Product used for unknown indication
     Dosage: UNK
     Route: 065
  4. Kerramaxcare [Concomitant]
     Indication: Product used for unknown indication
     Dosage: UNK
     Route: 065
  5. QV [Concomitant]
     Indication: Product used for unknown indication
     Dosage: UNK
     Route: 065

REACTIONS (1)
  - Anaphylactic reaction [Recovered/Resolved]
